FAERS Safety Report 5533934-5 (Version None)
Quarter: 2007Q4

REPORT INFORMATION
  Report Type: 
  Country: None (occurrence: None)
  Receive Date: 20071129
  Receipt Date: 20071113
  Transmission Date: 20080405
  Serious: Yes (Other)
  Sender: FDA-Public Use
  Company Number: S07-NOR-06074-01

PATIENT
  Age: 21 Year
  Sex: Female

DRUGS (6)
  1. ESCITALOPRAM [Suspect]
     Indication: DEPRESSION
     Dosage: 20 MG QD PO
     Route: 048
     Dates: start: 20071001
  2. ESCITALOPRAM [Suspect]
     Indication: PERSONALITY DISORDER
     Dosage: 20 MG QD PO
     Route: 048
     Dates: start: 20071001
  3. ESCITALOPRAM [Suspect]
     Indication: DEPRESSION
     Dosage: 20 MG QD PO
     Route: 048
     Dates: start: 20030101, end: 20070101
  4. ESCITALOPRAM [Suspect]
     Indication: PERSONALITY DISORDER
     Dosage: 20 MG QD PO
     Route: 048
     Dates: start: 20030101, end: 20070101
  5. STRATTERA [Suspect]
     Indication: ATTENTION DEFICIT/HYPERACTIVITY DISORDER
     Dosage: 60 MG QD
     Dates: start: 20030101
  6. ANTABUSE [Concomitant]

REACTIONS (6)
  - AFFECT LABILITY [None]
  - BIPOLAR DISORDER [None]
  - DEPRESSION [None]
  - DRUG INTERACTION [None]
  - PERSONALITY DISORDER [None]
  - SUICIDAL IDEATION [None]
